FAERS Safety Report 15166031 (Version 17)
Quarter: 2021Q1

REPORT INFORMATION
  Report Type: Spontaneous
  Country: CA (occurrence: CA)
  Receive Date: 20180719
  Receipt Date: 20210125
  Transmission Date: 20210419
  Serious: Yes (Disabling, Other)
  Sender: FDA-Public Use
  Company Number: CA-CELLTRION INC.-2018CA019490

PATIENT

DRUGS (47)
  1. INFLECTRA [Suspect]
     Active Substance: INFLIXIMAB-DYYB
     Dosage: 475 MG, 0, 2, 6, THEN EVERY 6 WEEKS
     Route: 042
     Dates: start: 20180515, end: 20180515
  2. INFLECTRA [Suspect]
     Active Substance: INFLIXIMAB-DYYB
     Dosage: 475 MG, 0, 2, 6, THEN EVERY 6 WEEKS
     Route: 042
     Dates: start: 20181101, end: 20181101
  3. INFLECTRA [Suspect]
     Active Substance: INFLIXIMAB-DYYB
     Dosage: 475 MG, 0, 2, 6, THEN EVERY 6 WEEKS
     Route: 042
     Dates: start: 20190304, end: 20190304
  4. INFLECTRA [Suspect]
     Active Substance: INFLIXIMAB-DYYB
     Dosage: 475 MG, 0, 2, 6, THEN EVERY 6 WEEKS
     Route: 042
     Dates: start: 20190415, end: 20190415
  5. ACETAMINOPHEN. [Concomitant]
     Active Substance: ACETAMINOPHEN
     Dosage: 650 MG
     Dates: start: 20200908, end: 20200908
  6. CYMBALTA [Concomitant]
     Active Substance: DULOXETINE HYDROCHLORIDE
     Dosage: 60 MG, UNK
     Route: 048
  7. TYLENOL 8HR [Concomitant]
     Active Substance: ACETAMINOPHEN
     Indication: FATIGUE
     Dosage: UNK, AS NEEDED
     Route: 065
  8. INFLECTRA [Suspect]
     Active Substance: INFLIXIMAB-DYYB
     Dosage: 475 MG, 0, 2, 6, THEN EVERY 6 WEEKS
     Route: 042
     Dates: start: 20190711, end: 20190711
  9. INFLECTRA [Suspect]
     Active Substance: INFLIXIMAB-DYYB
     Dosage: 475 MG, 0, 2, 6, THEN EVERY 6 WEEKS
     Route: 042
     Dates: start: 20190819
  10. INFLECTRA [Suspect]
     Active Substance: INFLIXIMAB-DYYB
     Dosage: 5 MG/KG (EVERY 6 WEEKS)
     Route: 042
     Dates: start: 20210115
  11. DIPHENHYDRAMINE. [Concomitant]
     Active Substance: DIPHENHYDRAMINE
     Dosage: 50 MG
     Dates: start: 20200908, end: 20200908
  12. DIPHENHYDRAMINE. [Concomitant]
     Active Substance: DIPHENHYDRAMINE
     Dosage: 50 MG
     Dates: start: 20201022, end: 20201022
  13. INFLECTRA [Suspect]
     Active Substance: INFLIXIMAB-DYYB
     Indication: ANKYLOSING SPONDYLITIS
     Dosage: 475 MG, 0, 2, 6, THEN EVERY 6 WEEKS
     Route: 042
     Dates: start: 20180402, end: 20180402
  14. INFLECTRA [Suspect]
     Active Substance: INFLIXIMAB-DYYB
     Indication: SACROILIITIS
     Dosage: 475 MG, 0, 2, 6, THEN EVERY 6 WEEKS
     Route: 042
     Dates: start: 20180402, end: 20190930
  15. INFLECTRA [Suspect]
     Active Substance: INFLIXIMAB-DYYB
     Dosage: 475 MG, 0, 2, 6, THEN EVERY 6 WEEKS
     Route: 042
     Dates: start: 20180919, end: 20180919
  16. INFLECTRA [Suspect]
     Active Substance: INFLIXIMAB-DYYB
     Dosage: 5 MG/KG, EVERY 6 WEEKS
     Route: 042
     Dates: start: 20191111
  17. INFLECTRA [Suspect]
     Active Substance: INFLIXIMAB-DYYB
     Dosage: 5 MG/KG (EVERY 6 WEEKS)
     Route: 042
     Dates: start: 20200728
  18. INFLECTRA [Suspect]
     Active Substance: INFLIXIMAB-DYYB
     Dosage: 5 MG/KG (EVERY 6 WEEKS)
     Route: 042
     Dates: start: 20201022
  19. ACETAMINOPHEN. [Concomitant]
     Active Substance: ACETAMINOPHEN
     Dosage: UNK
     Route: 048
     Dates: start: 20200206
  20. ACETAMINOPHEN. [Concomitant]
     Active Substance: ACETAMINOPHEN
     Dosage: 650 MG
     Dates: start: 20201022, end: 20201022
  21. TYLENOL 8HR [Concomitant]
     Active Substance: ACETAMINOPHEN
     Indication: HEADACHE
  22. INFLECTRA [Suspect]
     Active Substance: INFLIXIMAB-DYYB
     Dosage: 475 MG, 0, 2, 6, THEN EVERY 6 WEEKS
     Route: 042
     Dates: start: 20190124, end: 20190124
  23. INFLECTRA [Suspect]
     Active Substance: INFLIXIMAB-DYYB
     Dosage: 475 MG, 0, 2, 6, THEN EVERY 6 WEEKS
     Route: 042
     Dates: start: 20190529, end: 20190529
  24. INFLECTRA [Suspect]
     Active Substance: INFLIXIMAB-DYYB
     Dosage: 5 MG/KG, EVERY 6 WEEKS
     Route: 042
     Dates: start: 20200206
  25. ACETAMINOPHEN. [Concomitant]
     Active Substance: ACETAMINOPHEN
     Dosage: 650 MG
     Dates: start: 20200616
  26. DEXILANT [Concomitant]
     Active Substance: DEXLANSOPRAZOLE
     Dosage: 60 MG, UNK
     Route: 048
  27. DIPHENHYDRAMINE. [Concomitant]
     Active Substance: DIPHENHYDRAMINE
     Indication: PREMEDICATION
     Dosage: 50 MG, UNK
     Route: 048
  28. INFLECTRA [Suspect]
     Active Substance: INFLIXIMAB-DYYB
     Dosage: 475 MG, 0, 2, 6, THEN EVERY 6 WEEKS
     Route: 042
     Dates: start: 20190930, end: 20190930
  29. INFLECTRA [Suspect]
     Active Substance: INFLIXIMAB-DYYB
     Dosage: 5 MG/KG, EVERY 6 WEEKS
     Route: 042
     Dates: start: 20200320
  30. INFLECTRA [Suspect]
     Active Substance: INFLIXIMAB-DYYB
     Dosage: 5 MG/KG (EVERY 6 WEEKS)
     Route: 042
     Dates: start: 20201022
  31. ACETAMINOPHEN. [Concomitant]
     Active Substance: ACETAMINOPHEN
     Indication: PREMEDICATION
     Dosage: 650 MG, UNK
     Route: 048
  32. DIPHENHYDRAMINE. [Concomitant]
     Active Substance: DIPHENHYDRAMINE
     Dosage: 50 MG, UNK
     Route: 048
     Dates: start: 20200206
  33. NEURONTIN [Concomitant]
     Active Substance: GABAPENTIN
     Dosage: 400 UNK, UNK
     Route: 048
  34. INFLECTRA [Suspect]
     Active Substance: INFLIXIMAB-DYYB
     Dosage: 475 MG, 0, 2, 6, THEN EVERY 6 WEEKS
     Route: 042
     Dates: start: 20181101, end: 20181101
  35. INFLECTRA [Suspect]
     Active Substance: INFLIXIMAB-DYYB
     Dosage: 5 MG/KG, EVERY 6 WEEKS
     Route: 042
     Dates: start: 20191223
  36. REMERON [Concomitant]
     Active Substance: MIRTAZAPINE
     Dosage: 30 MG, UNK
     Route: 048
  37. INFLECTRA [Suspect]
     Active Substance: INFLIXIMAB-DYYB
     Dosage: 475 MG, 0, 2, 6, THEN EVERY 6 WEEKS
     Route: 042
     Dates: start: 20180417, end: 20180417
  38. INFLECTRA [Suspect]
     Active Substance: INFLIXIMAB-DYYB
     Dosage: 475 MG, 0, 2, 6, THEN EVERY 6 WEEKS
     Route: 042
     Dates: start: 20180809, end: 20180809
  39. INFLECTRA [Suspect]
     Active Substance: INFLIXIMAB-DYYB
     Dosage: 475 MG, 0, 2, 6, THEN EVERY 6 WEEKS
     Route: 042
     Dates: start: 20181213, end: 20181213
  40. INFLECTRA [Suspect]
     Active Substance: INFLIXIMAB-DYYB
     Dosage: 5 MG/KG, EVERY 6 WEEKS
     Route: 042
     Dates: start: 20200501
  41. INFLECTRA [Suspect]
     Active Substance: INFLIXIMAB-DYYB
     Dosage: 5 MG/KG (EVERY 6 WEEKS)
     Route: 042
     Dates: start: 20200616
  42. INFLECTRA [Suspect]
     Active Substance: INFLIXIMAB-DYYB
     Dosage: 5 MG/KG (EVERY 6 WEEKS)
     Route: 042
     Dates: start: 20200908
  43. DOVOBET [Concomitant]
     Active Substance: BETAMETHASONE\CALCIPOTRIENE
     Dosage: HS (BEDTIME)
     Route: 065
     Dates: start: 20180911
  44. INFLECTRA [Suspect]
     Active Substance: INFLIXIMAB-DYYB
     Dosage: 475 MG, 0, 2, 6, THEN EVERY 6 WEEKS
     Route: 042
     Dates: start: 20190124, end: 20190124
  45. INFLECTRA [Suspect]
     Active Substance: INFLIXIMAB-DYYB
     Dosage: 5 MG/KG (EVERY 6 WEEKS)
     Route: 042
     Dates: start: 20201022
  46. DIPHENHYDRAMINE. [Concomitant]
     Active Substance: DIPHENHYDRAMINE
     Dosage: 50 MG
     Route: 048
     Dates: start: 20200616
  47. METHOTREXATE SODIUM. [Concomitant]
     Active Substance: METHOTREXATE SODIUM
     Dosage: 25 MG, UNK
     Route: 058

REACTIONS (10)
  - Psoriasis [Recovering/Resolving]
  - Intentional product use issue [Unknown]
  - Fatigue [Not Recovered/Not Resolved]
  - Cough [Unknown]
  - Heart rate decreased [Unknown]
  - Headache [Recovered/Resolved]
  - Back pain [Unknown]
  - Eczema [Recovered/Resolved]
  - Off label use [Unknown]
  - Blood pressure increased [Unknown]

NARRATIVE: CASE EVENT DATE: 20180402
